FAERS Safety Report 21723028 (Version 1)
Quarter: 2022Q4

REPORT INFORMATION
  Report Type: Spontaneous
  Country: FR (occurrence: FR)
  Receive Date: 20221213
  Receipt Date: 20221213
  Transmission Date: 20230113
  Serious: Yes (Death, Other)
  Sender: FDA-Public Use
  Company Number: FR-BAXTER-2022BAX026222

PATIENT
  Age: 80 Year
  Sex: Male

DRUGS (3)
  1. CYCLOPHOSPHAMIDE [Suspect]
     Active Substance: CYCLOPHOSPHAMIDE
     Indication: Product used for unknown indication
     Dosage: UNK  (300 MG/DOSE, 1 DOSE(S) /WEEK 3 WEEK(S)/CYCLE, TREATMENT LINE NUMBER 9, TREATMENT DURATION: 1.2
     Route: 065
  2. DEXAMETHASONE [Suspect]
     Active Substance: DEXAMETHASONE
     Indication: Product used for unknown indication
     Dosage: UNK (20 MG/DOSE, 1 DOSE(S) /WEEK 4 WEEK(S)/CYCLE, TREATMENT LINE NUMBER 9, TREATMENT DURATION: 1.2 M
     Route: 065
  3. BORTEZOMIB [Suspect]
     Active Substance: BORTEZOMIB
     Indication: Product used for unknown indication
     Dosage: UNK (1 DOSE(S) /WEEK 4 WEEK(S)/CYCLE, TREATMENT LINE NUMBER 9, TREATMENT DURATION: 1.2 MONTHS)
     Route: 065

REACTIONS (2)
  - Respiratory failure [Fatal]
  - Respiratory distress [Fatal]

NARRATIVE: CASE EVENT DATE: 20191113
